FAERS Safety Report 4569596-3 (Version None)
Quarter: 2005Q1

REPORT INFORMATION
  Report Type: 
  Country: None (occurrence: None)
  Receive Date: 20050201
  Receipt Date: 20050124
  Transmission Date: 20050727
  Serious: Yes (Death, Hospitalization)
  Sender: FDA-Public Use
  Company Number: 2005GB00167

PATIENT
  Age: 74 Year
  Sex: Male

DRUGS (1)
  1. CASODEX [Suspect]
     Indication: PROSTATE CANCER
     Dosage: 100 MG TID PO
     Route: 048
     Dates: start: 20041123, end: 20041223

REACTIONS (2)
  - HEPATIC FAILURE [None]
  - JAUNDICE [None]
